FAERS Safety Report 4952877-9 (Version None)
Quarter: 2006Q1

REPORT INFORMATION
  Report Type: 
  Country: None (occurrence: None)
  Receive Date: 20060324
  Receipt Date: 20060202
  Transmission Date: 20060701
  Serious: Yes (Hospitalization)
  Sender: FDA-Public Use
  Company Number: US-KINGPHARMUSA00001-K200600140

PATIENT
  Age: 81 Year
  Sex: Male

DRUGS (2)
  1. ALTACE [Suspect]
     Indication: HYPERTENSION
     Dosage: 10 MG, QD
     Route: 048
     Dates: start: 20051225, end: 20060120
  2. OMNIC [Concomitant]
     Dosage: .4 MG, UNK

REACTIONS (3)
  - PITYRIASIS ROSEA [None]
  - PRURITUS [None]
  - RASH ERYTHEMATOUS [None]
